FAERS Safety Report 10742320 (Version 1)
Quarter: 2015Q1

REPORT INFORMATION
  Report Type: Spontaneous
  Country: US (occurrence: US)
  Receive Date: 20150127
  Receipt Date: 20150127
  Transmission Date: 20150721
  Serious: Yes (Other)
  Sender: FDA-Public Use
  Company Number: US-TEVA-535768USA

PATIENT
  Sex: Female
  Weight: 101.24 kg

DRUGS (12)
  1. QVAR [Suspect]
     Active Substance: BECLOMETHASONE DIPROPIONATE
     Route: 055
  2. TRAMADOL [Suspect]
     Active Substance: TRAMADOL
     Route: 065
  3. CODEINE [Suspect]
     Active Substance: CODEINE
     Route: 065
  4. DILAUDID [Suspect]
     Active Substance: HYDROMORPHONE HYDROCHLORIDE
     Route: 065
  5. LEVAQUIN [Suspect]
     Active Substance: LEVOFLOXACIN
     Route: 065
  6. CELEBREX [Suspect]
     Active Substance: CELECOXIB
     Route: 065
  7. IMITREX [Suspect]
     Active Substance: SUMATRIPTAN\SUMATRIPTAN SUCCINATE
     Route: 065
  8. PENICILLIN [Suspect]
     Active Substance: PENICILLIN
     Route: 065
  9. SULFUR. [Suspect]
     Active Substance: SULFUR
     Route: 065
  10. MOBIC [Suspect]
     Active Substance: MELOXICAM
     Route: 065
  11. MORPHINE [Suspect]
     Active Substance: MORPHINE
     Route: 065
  12. ASMANEX [Suspect]
     Active Substance: MOMETASONE FUROATE
     Route: 065

REACTIONS (4)
  - Urticaria [Unknown]
  - Blood pressure increased [Unknown]
  - Anaphylactic shock [Unknown]
  - Hypersensitivity [Unknown]
